FAERS Safety Report 13012722 (Version 1)
Quarter: 2016Q4

REPORT INFORMATION
  Report Type: Spontaneous
  Country: US (occurrence: US)
  Receive Date: 20161209
  Receipt Date: 20161209
  Transmission Date: 20170207
  Serious: No
  Sender: FDA-Public Use
  Company Number: US-TEVA-704756USA

PATIENT
  Age: 16 Year
  Sex: Male
  Weight: 80.73 kg

DRUGS (6)
  1. ABILIFY [Concomitant]
     Active Substance: ARIPIPRAZOLE
     Dates: start: 2013
  2. SERTRALINE [Concomitant]
     Active Substance: SERTRALINE HYDROCHLORIDE
     Dates: start: 2013
  3. GUAIFENESIN EXTENDED RELEASE [Suspect]
     Active Substance: GUAIFENESIN
     Indication: SINUSITIS
     Route: 048
     Dates: start: 20160917, end: 20160919
  4. LEVOTHYROXINE. [Concomitant]
     Active Substance: LEVOTHYROXINE
     Dates: start: 2013
  5. DEPAKOTE [Concomitant]
     Active Substance: DIVALPROEX SODIUM
     Dates: start: 2013
  6. AMPICILLIN [Concomitant]
     Active Substance: AMPICILLIN
     Dates: start: 20160915

REACTIONS (2)
  - Epistaxis [Recovered/Resolved]
  - Off label use [Unknown]

NARRATIVE: CASE EVENT DATE: 20160917
